FAERS Safety Report 9783091 (Version 1)
Quarter: 2013Q4

REPORT INFORMATION
  Report Type: Spontaneous
  Country: NL (occurrence: None)
  Receive Date: 20131223
  Receipt Date: 20131223
  Transmission Date: 20140711
  Serious: Yes (Hospitalization)
  Sender: FDA-Public Use
  Company Number: WIL-009-13-NL

PATIENT
  Age: 72 Year
  Sex: Female

DRUGS (4)
  1. WILATE [Suspect]
     Indication: VON WILLEBRAND^S DISEASE
     Route: 042
     Dates: start: 20130803, end: 20130803
  2. NIFEDIPINE [Concomitant]
  3. PREGABALIN [Concomitant]
  4. KETANSERIN [Concomitant]

REACTIONS (3)
  - Hypersensitivity [None]
  - Feeling hot [None]
  - Swelling face [None]
